FAERS Safety Report 5229814-5 (Version None)
Quarter: 2007Q1

REPORT INFORMATION
  Report Type: 
  Country: None (occurrence: None)
  Receive Date: 20070206
  Receipt Date: 20061102
  Transmission Date: 20070707
  Serious: No
  Sender: FDA-Public Use
  Company Number: US-GLAXOSMITHKLINE-A0626035A

PATIENT
  Sex: Male

DRUGS (9)
  1. PAXIL [Suspect]
     Indication: ANXIETY
     Dosage: 20MG PER DAY
     Route: 048
     Dates: start: 20040101
  2. TRANXENE [Concomitant]
  3. PLAVIX [Concomitant]
  4. COREG [Concomitant]
  5. ASPIRIN [Concomitant]
  6. M.V.I. [Concomitant]
  7. OMEGA 3 [Concomitant]
  8. METFORMIN HCL [Concomitant]
  9. ACTOS [Concomitant]

REACTIONS (3)
  - AGITATION [None]
  - NAUSEA [None]
  - NERVOUSNESS [None]
